FAERS Safety Report 7385081-8 (Version None)
Quarter: 2011Q1

REPORT INFORMATION
  Report Type: 
  Country: None (occurrence: None)
  Receive Date: 20110330
  Receipt Date: 20110315
  Transmission Date: 20110831
  Serious: Yes (Death)
  Sender: FDA-Public Use
  Company Number: JP-PFIZER INC-2011069749

PATIENT
  Age: 80 Year
  Sex: Female

DRUGS (5)
  1. FLUCONAZOLE [Suspect]
     Indication: FUNGAL INFECTION
     Dosage: 2 IN 1 DAY
     Route: 042
  2. MEROPENEM [Suspect]
     Dosage: 3 IN 1 DAY
     Route: 042
  3. CIPROFLOXACIN [Suspect]
     Dosage: 2 IN 1 DAY
     Route: 042
  4. ITRACONAZOLE [Suspect]
     Indication: PULMONARY MYCOSIS
     Dosage: UNKNOWN IN 1 DAY
     Route: 042
  5. LEVOFLOXACIN [Suspect]

REACTIONS (2)
  - DRUG INEFFECTIVE [None]
  - PULMONARY MYCOSIS [None]
